FAERS Safety Report 23419213 (Version 1)
Quarter: 2024Q1

REPORT INFORMATION
  Report Type: Report from Study
  Country: NL (occurrence: NL)
  Receive Date: 20240118
  Receipt Date: 20240118
  Transmission Date: 20240410
  Serious: Yes (Death, Other)
  Sender: FDA-Public Use
  Company Number: NL-VER-202400005

PATIENT
  Age: 75 Year
  Sex: Male

DRUGS (3)
  1. TRIPTORELIN PAMOATE [Suspect]
     Active Substance: TRIPTORELIN PAMOATE
     Indication: Prostate cancer
     Dosage: 1.00 X PER 6 MONTHS, ZINR: 15533212 (22.5 MG,6 M)
     Route: 030
     Dates: start: 20230727, end: 20230727
  2. TRIPTORELIN PAMOATE [Suspect]
     Active Substance: TRIPTORELIN PAMOATE
     Indication: Prostate cancer
     Dosage: 1.00 X PER 6 MONTHS, ZINR: 15533212 (22.5 MG,6 M)
     Route: 030
     Dates: start: 20210128, end: 20210128
  3. TRIPTORELIN PAMOATE [Suspect]
     Active Substance: TRIPTORELIN PAMOATE
     Indication: Prostate cancer
     Dosage: 1.00 X PER 6 MONTHS, ZINR: 15533212 (22.5 MG,6 M)
     Route: 030
     Dates: start: 20230802, end: 20230802

REACTIONS (1)
  - Death [Fatal]

NARRATIVE: CASE EVENT DATE: 20231106
